FAERS Safety Report 7635659-9 (Version None)
Quarter: 2011Q3

REPORT INFORMATION
  Report Type: 
  Country: None (occurrence: None)
  Receive Date: 20110726
  Receipt Date: 20110720
  Transmission Date: 20111222
  Serious: Yes (Death, Other)
  Sender: FDA-Public Use
  Company Number: PHHY2011CH65287

PATIENT
  Age: 75 Year
  Sex: Female

DRUGS (1)
  1. IMATINIB MESYLATE [Suspect]
     Dosage: 400 MG, DAILY

REACTIONS (6)
  - METASTASES TO LUNG [None]
  - DEATH [None]
  - AMNESIA [None]
  - DYSPNOEA [None]
  - METASTASES TO CENTRAL NERVOUS SYSTEM [None]
  - FALL [None]
